FAERS Safety Report 22675731 (Version 9)
Quarter: 2024Q3

REPORT INFORMATION
  Report Type: Report from Study
  Country: US (occurrence: US)
  Receive Date: 20230706
  Receipt Date: 20240713
  Transmission Date: 20241017
  Serious: Yes (Hospitalization)
  Sender: JOHNSON AND JOHNSON
  Company Number: US-JNJFOC-20230703725

PATIENT
  Age: 74 Year
  Sex: Male

DRUGS (4)
  1. DARATUMUMAB [Suspect]
     Active Substance: DARATUMUMAB
     Indication: Plasma cell myeloma
     Dosage: CYCLE 9
     Route: 065
     Dates: start: 20230310, end: 202303
  2. LENALIDOMIDE [Suspect]
     Active Substance: LENALIDOMIDE
     Indication: Plasma cell myeloma
     Dosage: CYCLE 9
     Route: 065
     Dates: start: 20230310, end: 202303
  3. IXAZOMIB [Suspect]
     Active Substance: IXAZOMIB
     Indication: Plasma cell myeloma
     Dosage: CYCLE 9?LAST DOSE PRIOR TO SAE ONSET: 27/JAN/2023
     Route: 065
     Dates: start: 20220712, end: 20230127
  4. DEXAMETHASONE [Suspect]
     Active Substance: DEXAMETHASONE
     Indication: Plasma cell myeloma
     Dosage: CYCLE 9
     Route: 065
     Dates: start: 20230310, end: 202303

REACTIONS (3)
  - Cardiac failure congestive [Not Recovered/Not Resolved]
  - Pulmonary oedema [Recovering/Resolving]
  - Pneumonia [Recovered/Resolved]

NARRATIVE: CASE EVENT DATE: 20230627
